FAERS Safety Report 4970787-8 (Version None)
Quarter: 2006Q2

REPORT INFORMATION
  Report Type: 
  Country: None (occurrence: None)
  Receive Date: 20060406
  Receipt Date: 20060320
  Transmission Date: 20061013
  Serious: Yes (Hospitalization)
  Sender: FDA-Public Use
  Company Number: US_0507119910

PATIENT
  Age: 45 Year
  Sex: Female
  Weight: 100.7 kg

DRUGS (11)
  1. ZYPREXA [Suspect]
     Indication: DISSOCIATIVE IDENTITY DISORDER
     Dosage: SEE IMAGE
     Dates: start: 19990126, end: 19990915
  2. ZYPREXA [Suspect]
     Indication: DISSOCIATIVE IDENTITY DISORDER
     Dosage: SEE IMAGE
     Dates: start: 19990915, end: 19991214
  3. ZYPREXA [Suspect]
     Indication: DISSOCIATIVE IDENTITY DISORDER
     Dosage: SEE IMAGE
     Dates: start: 19991214, end: 20000506
  4. ZYPREXA [Suspect]
     Indication: DISSOCIATIVE IDENTITY DISORDER
     Dosage: SEE IMAGE
     Dates: start: 20000506, end: 20040707
  5. ZYPREXA [Suspect]
     Indication: DISSOCIATIVE IDENTITY DISORDER
     Dosage: SEE IMAGE
     Dates: start: 20040807, end: 20050404
  6. ZYPREXA [Suspect]
     Indication: DISSOCIATIVE IDENTITY DISORDER
     Dosage: SEE IMAGE
     Dates: start: 19980422
  7. SEROQUEL [Concomitant]
  8. ABILIFY [Concomitant]
  9. TRICOR [Concomitant]
  10. SYNTHROID [Concomitant]
  11. AMARYL /SWE/ (GLIMEPIRIDE) [Concomitant]

REACTIONS (15)
  - DIABETES MELLITUS [None]
  - DIABETIC NEPHROPATHY [None]
  - INTENTIONAL OVERDOSE [None]
  - IRON DEFICIENCY ANAEMIA [None]
  - LEUKOCYTOSIS [None]
  - MENTAL DISORDER [None]
  - MICROCYTIC ANAEMIA [None]
  - OCCULT BLOOD POSITIVE [None]
  - POST-TRAUMATIC STRESS DISORDER [None]
  - PRESCRIBED OVERDOSE [None]
  - RENAL FAILURE [None]
  - RENAL IMPAIRMENT [None]
  - SELF INJURIOUS BEHAVIOUR [None]
  - VAGINAL HAEMORRHAGE [None]
  - WEIGHT INCREASED [None]
